FAERS Safety Report 9240255 (Version 2)
Quarter: 2013Q3

REPORT INFORMATION
  Report Type: Spontaneous
  Country: JP (occurrence: JP)
  Receive Date: 20130418
  Receipt Date: 20130718
  Transmission Date: 20140515
  Serious: Yes (Hospitalization)
  Sender: FDA-Public Use
  Company Number: JP-OTSUKA-JP-2013-10623

PATIENT
  Age: 87 Year
  Sex: Male
  Weight: 65 kg

DRUGS (18)
  1. SAMSCA [Suspect]
     Indication: CARDIAC FAILURE
     Dosage: 3.75 MG MILLIGRAM(S), QD
     Route: 048
     Dates: start: 20130110, end: 20130119
  2. SAMSCA [Suspect]
     Dosage: 7.5 MG MILLIGRAM(S), QD
     Route: 048
     Dates: start: 20130120, end: 20130223
  3. SAMSCA [Suspect]
     Dosage: 15 MG MILLIGRAM(S), QD
     Route: 048
     Dates: start: 20130224, end: 20130303
  4. HANP [Concomitant]
     Indication: CARDIAC FAILURE
     Dosage: 0.025 UG/KG/MIN, DAILY DOSE
     Route: 041
     Dates: start: 20130206, end: 20130212
  5. DOBUPUM [Concomitant]
     Indication: CARDIAC FAILURE
     Dosage: 3 UG/KG/MIN, DAILY DOSE
     Route: 041
     Dates: start: 20130207, end: 20130211
  6. DOBUPUM [Concomitant]
     Dosage: 4 UG/KG/MIN, DAILY DOSE
     Route: 041
     Dates: start: 20130212, end: 20130218
  7. DOBUPUM [Concomitant]
     Dosage: 2 UG/KG/MIN, DAILY DOSE
     Route: 041
     Dates: start: 20130219, end: 20130401
  8. MILRILA [Concomitant]
     Indication: CARDIAC FAILURE
     Dosage: 0.25 UG/KG/MIN, DAILY DOSE
     Route: 041
     Dates: start: 20130214, end: 20130309
  9. MILRILA [Concomitant]
     Dosage: 0.125 UG/KG/MIN, DAILY DOSE
     Route: 041
     Dates: start: 20130310, end: 20130313
  10. LASIX [Concomitant]
     Indication: CARDIAC FAILURE
     Dosage: 20 MG MILLIGRAM(S), QD
     Route: 042
     Dates: start: 20130206, end: 20130208
  11. LASIX [Concomitant]
     Dosage: 40 MG MILLIGRAM(S), QD
     Route: 042
     Dates: start: 20130209, end: 20130212
  12. LASIX [Concomitant]
     Dosage: 240 MG MILLIGRAM(S), DAILY DOSE
     Route: 041
     Dates: start: 20130213, end: 20130214
  13. LASIX [Concomitant]
     Dosage: 360 MG MILLIGRAM(S), DAILY DOSE
     Route: 041
     Dates: start: 20130215, end: 20130228
  14. LASIX [Concomitant]
     Dosage: 240 MG MILLIGRAM(S), DAILY DOSE
     Route: 041
     Dates: start: 20130301, end: 20130302
  15. LASIX [Concomitant]
     Dosage: 120 MG MILLIGRAM(S), DAILY DOSE
     Route: 041
     Dates: start: 20130303, end: 20130309
  16. LASIX [Concomitant]
     Dosage: 72 MG MILLIGRAM(S), DAILY DOSE
     Route: 041
     Dates: start: 20130310, end: 20130316
  17. LASIX [Concomitant]
     Dosage: 40 MG MILLIGRAM(S), QD
     Route: 042
     Dates: start: 20130317
  18. SOLDACTONE [Concomitant]
     Indication: CARDIAC FAILURE
     Dosage: 200 MG MILLIGRAM(S), QD
     Route: 042
     Dates: start: 20130216, end: 20130318

REACTIONS (3)
  - Parkinsonism [Recovering/Resolving]
  - Renal impairment [Recovering/Resolving]
  - Hypernatraemia [Recovering/Resolving]
